FAERS Safety Report 13806202 (Version 1)
Quarter: 2017Q3

REPORT INFORMATION
  Report Type: Spontaneous
  Country: CN (occurrence: CN)
  Receive Date: 20170728
  Receipt Date: 20170728
  Transmission Date: 20171127
  Serious: Yes (Other)
  Sender: FDA-Public Use
  Company Number: CN-FRESENIUS KABI-FK201706450

PATIENT
  Age: 58 Year
  Sex: Female

DRUGS (3)
  1. ETOPOSIDE (MANUFACTURER UNKNOWN) [Suspect]
     Active Substance: ETOPOSIDE
     Indication: LUNG NEOPLASM MALIGNANT
     Route: 065
  2. TENIPOSIDE. [Suspect]
     Active Substance: TENIPOSIDE
     Indication: BREAST CANCER
  3. 6-CHLORO-N-BUTYL-PHTHALIDE [Suspect]
     Active Substance: INVESTIGATIONAL PRODUCT
     Indication: LUNG NEOPLASM MALIGNANT

REACTIONS (1)
  - Myelodysplastic syndrome [Unknown]
